FAERS Safety Report 21227990 (Version 1)
Quarter: 2022Q3

REPORT INFORMATION
  Report Type: Spontaneous
  Country: US (occurrence: None)
  Receive Date: 20220818
  Receipt Date: 20220818
  Transmission Date: 20221027
  Serious: No
  Sender: FDA-Public Use
  Company Number: US-GLAUKOS-34853

PATIENT

DRUGS (1)
  1. DEVICE [Suspect]
     Active Substance: DEVICE
     Indication: Keratoconus
     Route: 047

REACTIONS (2)
  - Keratitis bacterial [Unknown]
  - Corneal defect [Unknown]

NARRATIVE: CASE EVENT DATE: 20220101
